FAERS Safety Report 5682191-8 (Version None)
Quarter: 2008Q1

REPORT INFORMATION
  Report Type: 
  Country: None (occurrence: None)
  Receive Date: 20080325
  Receipt Date: 20080311
  Transmission Date: 20080703
  Serious: Yes (Hospitalization)
  Sender: FDA-Public Use
  Company Number: 2008AL001607

PATIENT
  Sex: Female

DRUGS (1)
  1. IBUPROFEN [Suspect]
     Dosage: 200 MG QD PO
     Route: 048
     Dates: start: 20080202, end: 20080202

REACTIONS (7)
  - DYSPNOEA [None]
  - GLOSSITIS [None]
  - HAEMOPTYSIS [None]
  - LOCAL SWELLING [None]
  - OBSTRUCTIVE AIRWAYS DISORDER [None]
  - PHARYNGEAL OEDEMA [None]
  - RESUSCITATION [None]
